FAERS Safety Report 4555311-6 (Version None)
Quarter: 2004Q4

REPORT INFORMATION
  Report Type: 
  Country: None (occurrence: None)
  Receive Date: 20041227
  Receipt Date: 20040616
  Transmission Date: 20050328
  Serious: Yes (Hospitalization)
  Sender: FDA-Public Use
  Company Number: US078422

PATIENT
  Age: 68 Year
  Sex: Male
  Weight: 63.6 kg

DRUGS (1)
  1. ARANESP [Suspect]
     Indication: ANAEMIA OF MALIGNANT DISEASE
     Dosage: 200 MCG, 1 IN 2 WEEKS, SC
     Route: 058
     Dates: start: 20040513

REACTIONS (4)
  - DEHYDRATION [None]
  - HYPOMAGNESAEMIA [None]
  - OEDEMA [None]
  - WEIGHT INCREASED [None]
